FAERS Safety Report 9130889 (Version 1)
Quarter: 2013Q1

REPORT INFORMATION
  Report Type: Spontaneous
  Country: US (occurrence: US)
  Receive Date: 20130301
  Receipt Date: 20130301
  Transmission Date: 20140127
  Serious: No
  Sender: FDA-Public Use
  Company Number: US-BAYER-2013-023647

PATIENT
  Sex: Female

DRUGS (1)
  1. BEYAZ [Suspect]

REACTIONS (4)
  - Mood altered [None]
  - Fatigue [None]
  - Anger [None]
  - Breast tenderness [None]
